FAERS Safety Report 8455405-9 (Version None)
Quarter: 2012Q2

REPORT INFORMATION
  Report Type: 
  Country: None (occurrence: None)
  Receive Date: 20120621
  Receipt Date: 20120612
  Transmission Date: 20120825
  Serious: Yes (Other)
  Sender: FDA-Public Use
  Company Number: US-BRISTOL-MYERS SQUIBB COMPANY-16619629

PATIENT
  Age: 32 Year
  Sex: Female
  Weight: 84 kg

DRUGS (10)
  1. ALLEGRA [Concomitant]
  2. ENOXAPARIN [Suspect]
     Indication: DEEP VEIN THROMBOSIS
     Dates: start: 20120101
  3. THYROID TAB [Concomitant]
  4. NASONEX [Concomitant]
  5. LOVENOX [Concomitant]
  6. ATIVAN [Concomitant]
  7. PROAIR HFA [Concomitant]
  8. OMEPRAZOLE [Concomitant]
  9. COUMADIN [Suspect]
  10. PULMICORT [Concomitant]

REACTIONS (3)
  - DEEP VEIN THROMBOSIS [None]
  - CONTUSION [None]
  - INJECTION SITE PAIN [None]
